FAERS Safety Report 22162857 (Version 4)
Quarter: 2025Q3

REPORT INFORMATION
  Report Type: Report from Study
  Country: US (occurrence: US)
  Receive Date: 20230331
  Receipt Date: 20250710
  Transmission Date: 20251020
  Serious: Yes (Other)
  Sender: JAZZ
  Company Number: US-JAZZ PHARMACEUTICALS-2023-US-007278

PATIENT
  Sex: Male

DRUGS (10)
  1. EPIDIOLEX [Suspect]
     Active Substance: CANNABIDIOL
     Indication: Epilepsy
     Dates: start: 202008
  2. EPIDIOLEX [Suspect]
     Active Substance: CANNABIDIOL
     Indication: Lennox-Gastaut syndrome
  3. EPIDIOLEX [Suspect]
     Active Substance: CANNABIDIOL
     Dosage: 8 MILLILITER, BID
     Route: 048
     Dates: start: 202303
  4. EPIDIOLEX [Suspect]
     Active Substance: CANNABIDIOL
  5. EPIDIOLEX [Suspect]
     Active Substance: CANNABIDIOL
  6. EPIDIOLEX [Suspect]
     Active Substance: CANNABIDIOL
  7. EPIDIOLEX [Suspect]
     Active Substance: CANNABIDIOL
  8. EPIDIOLEX [Suspect]
     Active Substance: CANNABIDIOL
  9. EPIDIOLEX [Suspect]
     Active Substance: CANNABIDIOL
  10. EPIDIOLEX [Suspect]
     Active Substance: CANNABIDIOL

REACTIONS (2)
  - Liver injury [Unknown]
  - Drug intolerance [Unknown]
